FAERS Safety Report 10159311 (Version 4)
Quarter: 2014Q2

REPORT INFORMATION
  Report Type: Spontaneous
  Country: US (occurrence: US)
  Receive Date: 20140508
  Receipt Date: 20140516
  Transmission Date: 20141212
  Serious: Yes (Death, Hospitalization)
  Sender: FDA-Public Use
  Company Number: US-JNJFOC-20140421096

PATIENT
  Age: 17 Year
  Sex: Male

DRUGS (1)
  1. INFLIXIMAB, RECOMBINANT [Suspect]
     Indication: ENTEROCOLITIS
     Route: 042

REACTIONS (2)
  - Hepatic angiosarcoma [Fatal]
  - Pneumocystis jirovecii pneumonia [Recovered/Resolved]
